FAERS Safety Report 25889055 (Version 1)
Quarter: 2025Q4

REPORT INFORMATION
  Report Type: Report from Study
  Country: US (occurrence: US)
  Receive Date: 20251007
  Receipt Date: 20251007
  Transmission Date: 20260117
  Serious: Yes (Other)
  Sender: ABBVIE
  Company Number: US-ABBVIE-6488668

PATIENT
  Age: 77 Year
  Sex: Female

DRUGS (1)
  1. CREON [Suspect]
     Active Substance: PANCRELIPASE AMYLASE\PANCRELIPASE LIPASE\PANCRELIPASE PROTEASE
     Indication: Product used for unknown indication
     Route: 048
     Dates: start: 20250630

REACTIONS (5)
  - Breast cancer [Recovered/Resolved]
  - Balance disorder [Unknown]
  - Blister [Unknown]
  - Eye disorder [Unknown]
  - Meniere^s disease [Unknown]

NARRATIVE: CASE EVENT DATE: 20250101
